FAERS Safety Report 18318555 (Version 1)
Quarter: 2020Q3

REPORT INFORMATION
  Report Type: Spontaneous
  Country: US (occurrence: US)
  Receive Date: 20200927
  Receipt Date: 20200927
  Transmission Date: 20201103
  Serious: Yes (Other)
  Sender: FDA-Public Use
  Company Number: None

PATIENT
  Age: 72 Year
  Sex: Female
  Weight: 79.2 kg

DRUGS (4)
  1. DIPHENOXYLATE?ATROP [Concomitant]
     Active Substance: ATROPINE SULFATE\DIPHENOXYLATE HYDROCHLORIDE
  2. MESALAMINE DR [Concomitant]
     Active Substance: MESALAMINE
  3. ALPRAZOLAM. [Concomitant]
     Active Substance: ALPRAZOLAM
  4. LEVOTHYROXINE 100MCG TABLETS [Suspect]
     Active Substance: LEVOTHYROXINE
     Indication: PRODUCT USED FOR UNKNOWN INDICATION
     Dosage: OTHER STRENGTH:MCG;QUANTITY:1 TABLET(S);?
     Route: 048

REACTIONS (4)
  - Hypothyroidism [None]
  - Hyperthyroidism [None]
  - Suspected product quality issue [None]
  - Drug ineffective [None]

NARRATIVE: CASE EVENT DATE: 20200727
